FAERS Safety Report 8117676-8 (Version None)
Quarter: 2012Q1

REPORT INFORMATION
  Report Type: 
  Country: None (occurrence: None)
  Receive Date: 20120203
  Receipt Date: 20120203
  Transmission Date: 20120608
  Serious: Yes (Disabling, Other)
  Sender: FDA-Public Use
  Company Number: None

PATIENT
  Sex: Male
  Weight: 82.3 kg

DRUGS (1)
  1. PROPECIA [Suspect]
     Indication: ALOPECIA
     Dosage: 1.00 MG 1 TIME DAILY 047
     Route: 048
     Dates: start: 20061101, end: 20110328

REACTIONS (7)
  - GENITAL DISORDER MALE [None]
  - EJACULATION FAILURE [None]
  - ASTHENIA [None]
  - FEELING COLD [None]
  - UNEVALUABLE EVENT [None]
  - HYPOAESTHESIA [None]
  - ERECTILE DYSFUNCTION [None]
